FAERS Safety Report 9148887 (Version 1)
Quarter: 2013Q1

REPORT INFORMATION
  Report Type: Spontaneous
  Country: DK (occurrence: None)
  Receive Date: 20130131
  Receipt Date: 20130131
  Transmission Date: 20140127
  Serious: Yes (Other)
  Sender: FDA-Public Use
  Company Number: DK-SEPTODONT-200200632

PATIENT
  Age: 51 Year
  Sex: Male

DRUGS (1)
  1. SEPTANEST [Suspect]
     Indication: LOCAL ANAESTHESIA
     Route: 004
     Dates: start: 20020408

REACTIONS (2)
  - Tongue disorder [None]
  - Dysgeusia [None]
